FAERS Safety Report 8273672-1 (Version None)
Quarter: 2012Q2

REPORT INFORMATION
  Report Type: 
  Country: None (occurrence: None)
  Receive Date: 20120411
  Receipt Date: 20120307
  Transmission Date: 20120825
  Serious: No
  Sender: FDA-Public Use
  Company Number: US-TEVA-326780USA

PATIENT
  Sex: Female

DRUGS (4)
  1. AMPYRA [Concomitant]
     Indication: GAIT DISTURBANCE
     Dosage: 20 MILLIGRAM;
     Route: 048
     Dates: start: 20100701
  2. BACLOFEN [Concomitant]
  3. SERTRALINE HYDROCHLORIDE [Concomitant]
  4. NUVIGIL [Suspect]
     Indication: PRODUCT USED FOR UNKNOWN INDICATION
     Route: 048

REACTIONS (2)
  - FEELING ABNORMAL [None]
  - DIZZINESS [None]
